FAERS Safety Report 8054097-0 (Version None)
Quarter: 2012Q1

REPORT INFORMATION
  Report Type: 
  Country: None (occurrence: None)
  Receive Date: 20120118
  Receipt Date: 20120111
  Transmission Date: 20120608
  Serious: Yes (Other)
  Sender: FDA-Public Use
  Company Number: PHHY2012AU001992

PATIENT
  Age: 50 Year
  Sex: Male

DRUGS (2)
  1. AMLODIPINE [Suspect]
     Dosage: UNK UKN, UNK
     Route: 048
  2. METOPROLOL SUCCINATE [Suspect]
     Dosage: UNK UKN, UNK
     Route: 048

REACTIONS (2)
  - PAIN [None]
  - CHEST DISCOMFORT [None]
